FAERS Safety Report 5090405-0 (Version None)
Quarter: 2006Q3

REPORT INFORMATION
  Report Type: 
  Country: None (occurrence: None)
  Receive Date: 20060828
  Receipt Date: 20060822
  Transmission Date: 20061208
  Serious: Yes (Other)
  Sender: FDA-Public Use
  Company Number: 2006UW16663

PATIENT
  Age: 65 Year
  Sex: Female
  Weight: 56.7 kg

DRUGS (3)
  1. ARIMIDEX [Suspect]
     Indication: BREAST CANCER FEMALE
     Route: 048
  2. ARIMIDEX [Suspect]
     Route: 048
  3. ACTONEL [Concomitant]
     Indication: OSTEOPENIA

REACTIONS (6)
  - AMNESIA [None]
  - CYSTITIS [None]
  - FATIGUE [None]
  - INSOMNIA [None]
  - OSTEOPENIA [None]
  - VAGINAL HAEMORRHAGE [None]
